FAERS Safety Report 8014138-3 (Version None)
Quarter: 2011Q4

REPORT INFORMATION
  Report Type: 
  Country: None (occurrence: None)
  Receive Date: 20111223
  Receipt Date: 20111216
  Transmission Date: 20120403
  Serious: Yes (Other)
  Sender: FDA-Public Use
  Company Number: DSU-2011-09422

PATIENT
  Age: 40 Year
  Sex: Male

DRUGS (2)
  1. BENICAR [Suspect]
     Indication: HYPERTENSION
     Dosage: 20 MG (20 MG, QD), PER ORAL
     Route: 048
     Dates: start: 20111209, end: 20111210
  2. ATENOLOL [Concomitant]

REACTIONS (4)
  - HEART RATE INCREASED [None]
  - BLOOD PRESSURE INCREASED [None]
  - VOMITING [None]
  - LOSS OF CONSCIOUSNESS [None]
